FAERS Safety Report 11124914 (Version 1)
Quarter: 2015Q2

REPORT INFORMATION
  Report Type: Spontaneous
  Country: US (occurrence: US)
  Receive Date: 20150520
  Receipt Date: 20150520
  Transmission Date: 20150821
  Serious: No
  Sender: FDA-Public Use
  Company Number: US-009507513-1504USA020460

PATIENT
  Age: 36 Year
  Sex: Female
  Weight: 62.59 kg

DRUGS (1)
  1. NEXPLANON [Suspect]
     Active Substance: ETONOGESTREL
     Indication: CONTRACEPTION
     Dosage: EVERY 3 YEARS, 1 ROD, LEFT ARM
     Route: 059
     Dates: start: 20150223

REACTIONS (5)
  - Peripheral swelling [Unknown]
  - Vomiting in pregnancy [Unknown]
  - Galactorrhoea [Unknown]
  - Amenorrhoea [Unknown]
  - Hypoaesthesia [Unknown]

NARRATIVE: CASE EVENT DATE: 201502
